FAERS Safety Report 9563146 (Version 1)
Quarter: 2013Q3

REPORT INFORMATION
  Report Type: Spontaneous
  Country: US (occurrence: US)
  Receive Date: 20130927
  Receipt Date: 20130927
  Transmission Date: 20140515
  Serious: No
  Sender: FDA-Public Use
  Company Number: US-BRISTOL-MYERS SQUIBB COMPANY-17415258

PATIENT
  Age: 60 Year
  Sex: Female
  Weight: 74.37 kg

DRUGS (4)
  1. ONGLYZA TABS [Suspect]
     Indication: TYPE 2 DIABETES MELLITUS
  2. CRESTOR [Concomitant]
  3. LISINOPRIL [Concomitant]
  4. VITAMIN D [Concomitant]

REACTIONS (2)
  - Pain in extremity [Unknown]
  - Paraesthesia [Unknown]
